FAERS Safety Report 24281172 (Version 1)
Quarter: 2024Q3

REPORT INFORMATION
  Report Type: Spontaneous
  Country: US (occurrence: US)
  Receive Date: 20240904
  Receipt Date: 20240904
  Transmission Date: 20241017
  Serious: No
  Sender: ABBVIE
  Company Number: US-ABBVIE-5896535

PATIENT
  Sex: Female

DRUGS (1)
  1. RISANKIZUMAB [Suspect]
     Active Substance: RISANKIZUMAB
     Indication: Crohn^s disease
     Dosage: PATIENT THAT UNDERWENT HER 3 DOSES OF SKYRIZI IN JULY 2023
     Route: 042
     Dates: end: 20230929

REACTIONS (3)
  - Abdominal discomfort [Unknown]
  - Infection [Unknown]
  - General symptom [Unknown]
